FAERS Safety Report 20041428 (Version 2)
Quarter: 2021Q4

REPORT INFORMATION
  Report Type: Spontaneous
  Country: US (occurrence: US)
  Receive Date: 20211108
  Receipt Date: 20211114
  Transmission Date: 20220303
  Serious: Yes (Other)
  Sender: FDA-Public Use
  Company Number: US-drreddys-SPO/USA/21/0143469

PATIENT
  Age: 16 Year
  Sex: Female

DRUGS (1)
  1. ZENATANE [Suspect]
     Active Substance: ISOTRETINOIN
     Indication: Product used for unknown indication
     Dates: start: 20210414, end: 20210822

REACTIONS (10)
  - Mood altered [Unknown]
  - Depression [Unknown]
  - Lip haemorrhage [Unknown]
  - Blood test abnormal [Recovered/Resolved]
  - Amenorrhoea [Unknown]
  - Chapped lips [Unknown]
  - Blood triglycerides increased [Unknown]
  - Blood cholesterol increased [Unknown]
  - Abdominal discomfort [Unknown]
  - Treatment noncompliance [Unknown]
